FAERS Safety Report 23883329 (Version 2)
Quarter: 2024Q3

REPORT INFORMATION
  Report Type: Spontaneous
  Country: US (occurrence: US)
  Receive Date: 20240522
  Receipt Date: 20240705
  Transmission Date: 20241017
  Serious: No
  Sender: Vantive US Healthcare
  Company Number: US-VANTIVE-2024VAN017005

PATIENT

DRUGS (1)
  1. DIANEAL FOR PERITONEAL DIALYSIS [Suspect]
     Active Substance: ANHYDROUS DEXTROSE\CALCIUM CHLORIDE\MAGNESIUM CHLORIDE\SODIUM CHLORIDE\SODIUM LACTATE
     Route: 033

REACTIONS (3)
  - Product container issue [Unknown]
  - Discomfort [Unknown]
  - Malaise [Unknown]
